FAERS Safety Report 6298812-5 (Version None)
Quarter: 2009Q3

REPORT INFORMATION
  Report Type: 
  Country: None (occurrence: None)
  Receive Date: 20090806
  Receipt Date: 20090724
  Transmission Date: 20100115
  Serious: Yes (Hospitalization)
  Sender: FDA-Public Use
  Company Number: JP-PFIZER INC-2009248001

PATIENT
  Age: 84 Year

DRUGS (1)
  1. SILDENAFIL CITRATE [Suspect]
     Indication: PULMONARY HYPERTENSION
     Dosage: UNK
     Dates: start: 20090706, end: 20090723

REACTIONS (2)
  - BLOOD SODIUM DECREASED [None]
  - MUSCULOSKELETAL STIFFNESS [None]
